FAERS Safety Report 8552271-8 (Version None)
Quarter: 2012Q3

REPORT INFORMATION
  Report Type: 
  Country: None (occurrence: None)
  Receive Date: 20120731
  Receipt Date: 20120723
  Transmission Date: 20120928
  Serious: Yes (Life-Threatening)
  Sender: FDA-Public Use
  Company Number: IT-DENTSPLY-2012SCDP002973

PATIENT
  Sex: Female

DRUGS (1)
  1. MEPIVACAINE HCL [Suspect]
     Indication: PRODUCT USED FOR UNKNOWN INDICATION
     Route: 065

REACTIONS (4)
  - ERYTHEMA [None]
  - HYPERHIDROSIS [None]
  - LOCALISED OEDEMA [None]
  - HYPOTENSION [None]
